FAERS Safety Report 20231141 (Version 1)
Quarter: 2021Q4

REPORT INFORMATION
  Report Type: Spontaneous
  Country: TR (occurrence: TR)
  Receive Date: 20211227
  Receipt Date: 20211227
  Transmission Date: 20220303
  Serious: Yes (Death, Congenital Anomaly)
  Sender: FDA-Public Use
  Company Number: TR-ABBVIE-21K-161-4212668-00

PATIENT
  Age: 3 Month
  Sex: Male
  Weight: 4 kg

DRUGS (1)
  1. SURVANTA [Suspect]
     Active Substance: BERACTANT
     Indication: Neonatal respiratory distress syndrome
     Dosage: UNKNOWN
     Route: 037
     Dates: start: 202111, end: 202111

REACTIONS (1)
  - Renal failure [Fatal]

NARRATIVE: CASE EVENT DATE: 20211118
